FAERS Safety Report 4883294-8 (Version None)
Quarter: 2006Q1

REPORT INFORMATION
  Report Type: 
  Country: None (occurrence: None)
  Receive Date: 20060113
  Receipt Date: 20060105
  Transmission Date: 20060701
  Serious: Yes (Other)
  Sender: FDA-Public Use
  Company Number: 2006003304

PATIENT
  Age: 60 Year
  Sex: Female

DRUGS (3)
  1. MINOXIDIL [Suspect]
     Indication: ALOPECIA
     Dosage: TOPICAL
     Route: 061
     Dates: start: 20050801
  2. LEVOTHYROXINE SODIUM [Concomitant]
  3. SIMVASTATIN [Concomitant]

REACTIONS (1)
  - VITREOUS DETACHMENT [None]
